FAERS Safety Report 8409290-1 (Version None)
Quarter: 2012Q2

REPORT INFORMATION
  Report Type: 
  Country: None (occurrence: None)
  Receive Date: 20120605
  Receipt Date: 20120530
  Transmission Date: 20120825
  Serious: Yes (Hospitalization, Other)
  Sender: FDA-Public Use
  Company Number: US-AMGEN-USASP2012033892

PATIENT
  Age: 59 Year
  Sex: Male

DRUGS (4)
  1. EPOGEN [Suspect]
     Dosage: 20000 UNIT, 6 TIMES/WK
     Route: 058
     Dates: start: 20120101, end: 20120201
  2. ARANESP [Suspect]
     Indication: RENAL FAILURE CHRONIC
     Dosage: 200 MUG, QWK
     Dates: start: 20111001, end: 20120130
  3. EPOGEN [Suspect]
     Dosage: 115000 UNIT, QWK
     Route: 042
     Dates: start: 20120201
  4. EPOGEN [Suspect]
     Indication: RENAL FAILURE CHRONIC
     Dosage: 115000 UNIT, QWK
     Dates: end: 20111012

REACTIONS (3)
  - LEG AMPUTATION [None]
  - DRUG INEFFECTIVE [None]
  - HAEMOGLOBIN DECREASED [None]
